FAERS Safety Report 8439516-X (Version None)
Quarter: 2012Q2

REPORT INFORMATION
  Report Type: 
  Country: None (occurrence: None)
  Receive Date: 20120615
  Receipt Date: 20120608
  Transmission Date: 20120825
  Serious: Yes (Hospitalization)
  Sender: FDA-Public Use
  Company Number: IT-PFIZER INC-2012139568

PATIENT
  Age: 39 Year
  Sex: Male

DRUGS (5)
  1. TRAMADOL HCL [Suspect]
     Dosage: UNK
     Route: 048
     Dates: start: 20120308, end: 20120508
  2. EPERISONE HYDROCHLORIDE [Suspect]
     Indication: MUSCLE RELAXANT THERAPY
     Dosage: UNK
     Route: 048
     Dates: start: 20120308, end: 20120508
  3. LYRICA [Suspect]
     Indication: ANALGESIC THERAPY
     Dosage: UNK
     Dates: start: 20120308, end: 20120508
  4. TACHIDOL [Suspect]
     Indication: ANALGESIC THERAPY
     Dosage: UNK
     Route: 048
     Dates: start: 20120308, end: 20120508
  5. ACETAMINOPHEN [Suspect]
     Dosage: UNK
     Route: 048
     Dates: start: 20120308, end: 20120508

REACTIONS (8)
  - ANAEMIA [None]
  - DIARRHOEA [None]
  - DUODENAL ULCER HAEMORRHAGE [None]
  - DYSPNOEA EXERTIONAL [None]
  - DECREASED APPETITE [None]
  - FATIGUE [None]
  - WEIGHT DECREASED [None]
  - VOMITING [None]
